FAERS Safety Report 4309270-1 (Version None)
Quarter: 2004Q1

REPORT INFORMATION
  Report Type: 
  Country: None (occurrence: None)
  Receive Date: 20040301
  Receipt Date: 20040219
  Transmission Date: 20041129
  Serious: Yes (Hospitalization)
  Sender: FDA-Public Use
  Company Number: JP-JNJFOC-20040204154

PATIENT
  Age: 60 Year
  Sex: Male

DRUGS (2)
  1. LEVOFLOXACIN [Suspect]
     Indication: BRONCHITIS ACUTE
     Dosage: 0.2 G, 2 IN 1 DAY ORAL
     Route: 048
  2. BROMHEXIN (BROMHEXIN) [Concomitant]

REACTIONS (6)
  - AGEUSIA [None]
  - DECREASED APPETITE [None]
  - HICCUPS [None]
  - NAUSEA [None]
  - NERVOUS SYSTEM DISORDER [None]
  - PARKINSON'S DISEASE [None]
